FAERS Safety Report 6175960-1 (Version None)
Quarter: 2009Q2

REPORT INFORMATION
  Report Type: 
  Country: None (occurrence: None)
  Receive Date: 20090501
  Receipt Date: 20090428
  Transmission Date: 20091009
  Serious: Yes (Hospitalization, Other)
  Sender: FDA-Public Use
  Company Number: US-ASTRAZENECA-2009UW10667

PATIENT
  Sex: Female

DRUGS (1)
  1. SEROQUEL [Suspect]
     Dosage: 40 TABLETS
     Route: 048

REACTIONS (3)
  - CEREBRAL HAEMORRHAGE [None]
  - INJURY [None]
  - OVERDOSE [None]
